FAERS Safety Report 17835531 (Version 3)
Quarter: 2021Q2

REPORT INFORMATION
  Report Type: Report from Study
  Country: BR (occurrence: BR)
  Receive Date: 20200528
  Receipt Date: 20210511
  Transmission Date: 20210717
  Serious: Yes (Hospitalization, Other)
  Sender: FDA-Public Use
  Company Number: BR-SA-2019SA259431

PATIENT
  Age: 24 Year
  Sex: Male
  Weight: 62 kg

DRUGS (1)
  1. ALEMTUZUMAB [Suspect]
     Active Substance: ALEMTUZUMAB
     Indication: MULTIPLE SCLEROSIS
     Dosage: DOSE UNIT:12; UNK
     Route: 041
     Dates: start: 20191216, end: 20191220

REACTIONS (12)
  - Headache [Recovering/Resolving]
  - Tachycardia [Recovering/Resolving]
  - Feeling abnormal [Unknown]
  - Seizure [Unknown]
  - Gait disturbance [Recovering/Resolving]
  - Syncope [Recovering/Resolving]
  - Unevaluable event [Unknown]
  - Loss of consciousness [Unknown]
  - Spinal pain [Unknown]
  - Pyrexia [Recovering/Resolving]
  - Pain in extremity [Recovering/Resolving]
  - Drug ineffective [Unknown]

NARRATIVE: CASE EVENT DATE: 20191216
